FAERS Safety Report 7255375-5 (Version None)
Quarter: 2011Q1

REPORT INFORMATION
  Report Type: 
  Country: None (occurrence: None)
  Receive Date: 20110129
  Receipt Date: 20100301
  Transmission Date: 20110831
  Serious: No
  Sender: FDA-Public Use
  Company Number: US-ABBOTT-10P-163-0630046-00

PATIENT
  Sex: Female
  Weight: 53.572 kg

DRUGS (6)
  1. BYSTOLIC [Concomitant]
     Indication: PRODUCT USED FOR UNKNOWN INDICATION
  2. ZOCOR [Concomitant]
     Indication: BLOOD CHOLESTEROL INCREASED
  3. HUMIRA [Suspect]
     Indication: PSORIASIS
     Dates: start: 20091201
  4. MICARDIS [Concomitant]
     Indication: HYPERTENSION
  5. LYRICA [Concomitant]
     Indication: PAIN
     Dosage: UNKNOWN
  6. ZANTAC [Concomitant]
     Indication: GASTROOESOPHAGEAL REFLUX DISEASE

REACTIONS (2)
  - PRURITUS [None]
  - INJECTION SITE PAIN [None]
